FAERS Safety Report 5259270-2 (Version None)
Quarter: 2007Q1

REPORT INFORMATION
  Report Type: 
  Country: None (occurrence: None)
  Receive Date: 20070308
  Receipt Date: 20070306
  Transmission Date: 20070707
  Serious: Yes (Other)
  Sender: FDA-Public Use
  Company Number: IE-BOEHRINGER INGELHEIM PHARMACEUTICALS, INC.-2007-UK-00785IE

PATIENT
  Age: 51 Year
  Sex: Female

DRUGS (1)
  1. DIXARIT [Suspect]
     Indication: MENOPAUSAL SYMPTOMS
     Route: 048

REACTIONS (3)
  - HYPERSENSITIVITY [None]
  - RASH [None]
  - THROAT TIGHTNESS [None]
